FAERS Safety Report 11283318 (Version 2)
Quarter: 2015Q3

REPORT INFORMATION
  Report Type: Spontaneous
  Country: US (occurrence: US)
  Receive Date: 20150720
  Receipt Date: 20150820
  Transmission Date: 20151125
  Serious: Yes (Other)
  Sender: FDA-Public Use
  Company Number: US-GLAXOSMITHKLINE-US2015102787

PATIENT
  Age: 46 Year
  Sex: Female

DRUGS (1)
  1. BENLYSTA [Suspect]
     Active Substance: BELIMUMAB
     Indication: PRODUCT USED FOR UNKNOWN INDICATION
     Dosage: UNK
     Dates: start: 2014

REACTIONS (7)
  - Migraine [Unknown]
  - Neurological decompensation [Unknown]
  - Headache [Unknown]
  - Diplopia [Unknown]
  - Cerebral disorder [Unknown]
  - Nuclear magnetic resonance imaging abnormal [Unknown]
  - Progressive multifocal leukoencephalopathy [Unknown]
